FAERS Safety Report 7410279-X (Version None)
Quarter: 2011Q2

REPORT INFORMATION
  Report Type: 
  Country: None (occurrence: None)
  Receive Date: 20110412
  Receipt Date: 20110311
  Transmission Date: 20111010
  Serious: Yes (Hospitalization, Other)
  Sender: FDA-Public Use
  Company Number: US-BAYER-201040943NA

PATIENT
  Age: 26 Year
  Sex: Female
  Weight: 91.61 kg

DRUGS (12)
  1. NITROFURANTOIN [Concomitant]
     Dosage: UNK
     Dates: start: 20071126
  2. FLUOXETINE [Concomitant]
     Indication: DEPRESSION
     Dosage: UNK
     Dates: start: 20080101, end: 20100101
  3. YASMIN [Suspect]
     Indication: CONTRACEPTION
     Dosage: UNK
     Route: 048
     Dates: start: 20080717, end: 20091204
  4. POTASSIUM [Concomitant]
  5. CLINDAMYCIN [Concomitant]
     Dosage: UNK
     Dates: start: 20071017
  6. NEOMYCIN [Concomitant]
     Dosage: UNK
     Dates: start: 20080102
  7. HYDROCODONE [Concomitant]
     Indication: PAIN
     Dosage: UNK
     Dates: start: 20080101, end: 20100101
  8. ACETAMINOPHEN [Concomitant]
     Dosage: UNK UNK, PRN
  9. ALPRAZOLAM [Concomitant]
     Indication: ANXIETY
     Dosage: UNK
     Dates: start: 20080101, end: 20090101
  10. IBUPROFEN [Concomitant]
     Indication: MIGRAINE
  11. TERBUTALINE [Concomitant]
     Dosage: UNK
     Dates: start: 20080513
  12. HYDROCHLOROTHIAZIDE [Concomitant]

REACTIONS (4)
  - GALLBLADDER DISORDER [None]
  - CHOLECYSTITIS ACUTE [None]
  - CHOLECYSTITIS CHRONIC [None]
  - CHOLECYSTITIS [None]
